FAERS Safety Report 4723844-5 (Version None)
Quarter: 2005Q3

REPORT INFORMATION
  Report Type: 
  Country: None (occurrence: None)
  Receive Date: 20050721
  Receipt Date: 20050708
  Transmission Date: 20060218
  Serious: Yes (Other)
  Sender: FDA-Public Use
  Company Number: 2005PV000239

PATIENT
  Age: 64 Year
  Sex: Male
  Weight: 136.0791 kg

DRUGS (13)
  1. BYETTA [Suspect]
     Indication: DIABETES MELLITUS NON-INSULIN-DEPENDENT
     Dosage: 5 UG;BID; SC
     Route: 058
     Dates: start: 20050614, end: 20050705
  2. BYETTA [Suspect]
     Indication: DIABETES MELLITUS NON-INSULIN-DEPENDENT
     Dosage: 5 UG;BID; SC
     Route: 058
     Dates: start: 20050711
  3. LIPITOR [Suspect]
     Indication: HYPERCHOLESTEROLAEMIA
     Dosage: 10 MG;QD; PO
     Route: 048
     Dates: start: 20050528, end: 20050627
  4. TOPROL-XL [Concomitant]
  5. TORESEMIDE [Concomitant]
  6. LISINOPRIL [Concomitant]
  7. ALLOPURINOL [Concomitant]
  8. LANTUS [Concomitant]
  9. NOVOLOG [Concomitant]
  10. PLAVIX [Concomitant]
  11. LEVOXYL [Concomitant]
  12. ASPIRIN [Concomitant]
  13. TOPROL-XL [Concomitant]

REACTIONS (7)
  - BLOOD GLUCOSE INCREASED [None]
  - DIZZINESS [None]
  - DYSPEPSIA [None]
  - NAUSEA [None]
  - RENAL FAILURE ACUTE [None]
  - RHABDOMYOLYSIS [None]
  - STOMACH DISCOMFORT [None]
